FAERS Safety Report 25019130 (Version 1)
Quarter: 2025Q1

REPORT INFORMATION
  Report Type: Spontaneous
  Country: US (occurrence: US)
  Receive Date: 20250227
  Receipt Date: 20250227
  Transmission Date: 20250408
  Serious: Yes (Other)
  Sender: PFIZER
  Company Number: US-PFIZER INC-202500042743

PATIENT
  Age: 17 Year
  Sex: Male

DRUGS (2)
  1. DEXTROSE [Suspect]
     Active Substance: DEXTROSE MONOHYDRATE
     Indication: Familial periodic paralysis
  2. INSULIN NOS [Suspect]
     Active Substance: INSULIN NOS
     Indication: Familial periodic paralysis

REACTIONS (2)
  - Quadriplegia [Unknown]
  - Off label use [Unknown]
